FAERS Safety Report 11683081 (Version 1)
Quarter: 2015Q4

REPORT INFORMATION
  Report Type: Spontaneous
  Country: AT (occurrence: AT)
  Receive Date: 20151029
  Receipt Date: 20151029
  Transmission Date: 20160304
  Serious: Yes (Other)
  Sender: FDA-Public Use
  Company Number: AT-009507513-1510AUT013594

PATIENT
  Age: 62 Year
  Sex: Female

DRUGS (22)
  1. AMITRIPTYLINE HYDROCHLORIDE. [Suspect]
     Active Substance: AMITRIPTYLINE HYDROCHLORIDE
     Route: 048
  2. LEVOTHYROXINE SODIUM. [Suspect]
     Active Substance: LEVOTHYROXINE SODIUM
     Route: 048
  3. NITROGLYCERIN. [Suspect]
     Active Substance: NITROGLYCERIN
     Route: 062
  4. FENTANYL CITRATE. [Suspect]
     Active Substance: FENTANYL CITRATE
     Route: 062
  5. ASPIRIN. [Suspect]
     Active Substance: ASPIRIN
     Route: 048
  6. MIDAZOLAM [Suspect]
     Active Substance: MIDAZOLAM\MIDAZOLAM HYDROCHLORIDE
     Dosage: 1 MG/H UP TO 7 MG/H AND 3 MG BOLUS
     Route: 058
  7. GABAPENTIN. [Suspect]
     Active Substance: GABAPENTIN
  8. HALOPERIDOL. [Suspect]
     Active Substance: HALOPERIDOL
     Dosage: 5-10 MG
     Route: 042
  9. ANASTROZOLE. [Suspect]
     Active Substance: ANASTROZOLE
  10. POLYETHYLENE GLYCOL 3350. [Suspect]
     Active Substance: POLYETHYLENE GLYCOL 3350
     Indication: PRODUCT USED FOR UNKNOWN INDICATION
  11. DOXORUBICIN HYDROCHLORIDE. [Suspect]
     Active Substance: DOXORUBICIN HYDROCHLORIDE
     Route: 042
  12. DIAZEPAM. [Suspect]
     Active Substance: DIAZEPAM
     Route: 048
  13. LORAZEPAM. [Suspect]
     Active Substance: LORAZEPAM
  14. HYDROMORPHONE HYDROCHLORIDE. [Suspect]
     Active Substance: HYDROMORPHONE HYDROCHLORIDE
     Route: 048
  15. FULVESTRANT [Suspect]
     Active Substance: FULVESTRANT
  16. FLUOXETINE HYDROCHLORIDE. [Suspect]
     Active Substance: FLUOXETINE HYDROCHLORIDE
  17. ALPRAZOLAM. [Suspect]
     Active Substance: ALPRAZOLAM
  18. SIMVASTATIN BAYER [Suspect]
     Active Substance: SIMVASTATIN
  19. METOPROLOL TARTRATE. [Suspect]
     Active Substance: METOPROLOL TARTRATE
  20. EXEMESTANE. [Suspect]
     Active Substance: EXEMESTANE
  21. DIPYRONE [Suspect]
     Active Substance: DIPYRONE
  22. QUETIAPINE FUMARATE. [Suspect]
     Active Substance: QUETIAPINE FUMARATE
     Route: 048

REACTIONS (4)
  - Hemiparesis [Unknown]
  - Delirium [Unknown]
  - Incorrect route of drug administration [Unknown]
  - Drug interaction [Unknown]
